FAERS Safety Report 9384748 (Version 1)
Quarter: 2013Q3

REPORT INFORMATION
  Report Type: Spontaneous
  Country: GB (occurrence: None)
  Receive Date: 20130701
  Receipt Date: 20130701
  Transmission Date: 20140515
  Serious: Yes (Other)
  Sender: FDA-Public Use
  Company Number: AUR-APL-2013-05306

PATIENT
  Age: 56 Year
  Sex: Female

DRUGS (2)
  1. RISPERIDONE (RISPERIDONE) [Suspect]
     Indication: SCHIZOPHRENIA
     Route: 048
     Dates: start: 20130409
  2. XEPLION [Suspect]
     Indication: SCHIZOPHRENIA
     Route: 030
     Dates: start: 20130502

REACTIONS (5)
  - Hypokalaemia [None]
  - Renal impairment [None]
  - Blood prolactin increased [None]
  - Drug dose omission [None]
  - Mental status changes [None]
